FAERS Safety Report 11791254 (Version 1)
Quarter: 2015Q4

REPORT INFORMATION
  Report Type: Spontaneous
  Country: ES (occurrence: ES)
  Receive Date: 20151201
  Receipt Date: 20151201
  Transmission Date: 20160305
  Serious: Yes (Hospitalization)
  Sender: FDA-Public Use
  Company Number: ES-JNJFOC-20151125098

PATIENT
  Age: 27 Year
  Sex: Female

DRUGS (1)
  1. ORTHO EVRA [Suspect]
     Active Substance: ETHINYL ESTRADIOL\NORELGESTROMIN
     Indication: CONTRACEPTION
     Route: 062
     Dates: start: 2013, end: 201505

REACTIONS (2)
  - Mesenteric vein thrombosis [Recovered/Resolved]
  - Inappropriate schedule of drug administration [Unknown]

NARRATIVE: CASE EVENT DATE: 201505
